FAERS Safety Report 9485958 (Version 1)
Quarter: 2013Q3

REPORT INFORMATION
  Report Type: Spontaneous
  Country: US (occurrence: None)
  Receive Date: 20130826
  Receipt Date: 20130826
  Transmission Date: 20140515
  Serious: Yes (Other)
  Sender: FDA-Public Use
  Company Number: TPA2013A07760

PATIENT
  Sex: 0

DRUGS (2)
  1. ACTOS (PIOGLITAZONE HYDROCHLORIDE) [Suspect]
  2. TRAJENTA (LINAGLIPTIN) [Suspect]

REACTIONS (1)
  - Pancreatic carcinoma [None]
